FAERS Safety Report 5300496-7 (Version None)
Quarter: 2007Q2

REPORT INFORMATION
  Report Type: 
  Country: None (occurrence: None)
  Receive Date: 20070418
  Receipt Date: 20070405
  Transmission Date: 20071010
  Serious: Yes (Other)
  Sender: FDA-Public Use
  Company Number: PHEH2007US04300

PATIENT
  Sex: Female

DRUGS (16)
  1. ZELNORM [Suspect]
     Indication: IRRITABLE BOWEL SYNDROME
     Dosage: UNK, UNK
     Dates: end: 20070403
  2. POTASSIUM CHLORIDE [Concomitant]
  3. PREVACID [Concomitant]
  4. REQUIP [Concomitant]
  5. SEROQUEL [Concomitant]
  6. ASPIRIN [Concomitant]
  7. ZETIA [Concomitant]
  8. CLONAZEPAM [Concomitant]
  9. TRAMADOL HCL [Concomitant]
  10. LYRICA [Concomitant]
  11. EFFEXOR XR [Concomitant]
  12. HYDROCHLOROTHIAZIDE [Concomitant]
  13. LIPITOR [Concomitant]
  14. METOPROLOL SUCCINATE [Concomitant]
  15. MULTIVITAMINS WITH MINERALS [Concomitant]
  16. OXYGEN THERAPY [Concomitant]
     Dosage: 2 LITERS A DAY

REACTIONS (1)
  - CORONARY ARTERY BYPASS [None]
